FAERS Safety Report 8172898-5 (Version None)
Quarter: 2012Q1

REPORT INFORMATION
  Report Type: 
  Country: None (occurrence: None)
  Receive Date: 20120223
  Receipt Date: 20120208
  Transmission Date: 20120608
  Serious: Yes (Hospitalization)
  Sender: FDA-Public Use
  Company Number: 1000027429

PATIENT
  Age: 88 Year
  Sex: Male

DRUGS (9)
  1. CITALOPRAM HYDROBROMIDE [Suspect]
     Indication: DEPRESSION
     Dosage: 30 MG (30 MG, 1 IN 1 D),ORAL
     Route: 048
  2. OMEPRAZOLE [Concomitant]
  3. NITROGLYCERIN [Concomitant]
  4. LEVOTHYROXINE SODIUM [Concomitant]
  5. ATENOLOL [Concomitant]
  6. SIMVASTATIN [Concomitant]
  7. TAMSULOSIN(TAMSULOSIN)(TAMSULOSIN) [Concomitant]
  8. BROMAZEPAM(BROMAZEPAM)(BROMAZEPAM) [Concomitant]
  9. ACETYLSALICYLIC ACID SRT [Concomitant]

REACTIONS (5)
  - MALAISE [None]
  - INAPPROPRIATE ANTIDIURETIC HORMONE SECRETION [None]
  - CEREBRAL ATROPHY [None]
  - MUSCULAR WEAKNESS [None]
  - DIZZINESS [None]
